FAERS Safety Report 5732531-6 (Version None)
Quarter: 2008Q2

REPORT INFORMATION
  Report Type: 
  Country: None (occurrence: None)
  Receive Date: 20080506
  Receipt Date: 20080417
  Transmission Date: 20081010
  Serious: Yes (Other)
  Sender: FDA-Public Use
  Company Number: GB-DEXPHARM-20080365

PATIENT
  Age: 47 Year
  Sex: Male

DRUGS (1)
  1. PERIOCHIP [Suspect]
     Dosage: ^2 CHIPS^ {5 MG MILLIGRAM(S)}
     Route: 061
     Dates: start: 20080206

REACTIONS (3)
  - PRURITUS [None]
  - RASH [None]
  - SWELLING FACE [None]
